FAERS Safety Report 16840331 (Version 3)
Quarter: 2019Q4

REPORT INFORMATION
  Report Type: Spontaneous
  Country: ES (occurrence: ES)
  Receive Date: 20190923
  Receipt Date: 20191016
  Transmission Date: 20200122
  Serious: Yes (Hospitalization)
  Sender: FDA-Public Use
  Company Number: ES-PFIZER INC-2019404919

PATIENT
  Age: 91 Year
  Sex: Female

DRUGS (3)
  1. LORAZEPAM. [Suspect]
     Active Substance: LORAZEPAM
     Dosage: UNK
     Route: 065
  2. RISPERDAL [Interacting]
     Active Substance: RISPERIDONE
     Indication: DEMENTIA ALZHEIMER^S TYPE
     Dosage: 2 MG, DAILY (0.5 MG IN THE MORNING, 0.5 MG IN THE AFTERNOON AND 1 MG AT NIGHT)
     Route: 065
  3. RISPERDAL [Interacting]
     Active Substance: RISPERIDONE
     Dosage: 0.5 MG, 2X/DAY (0.5 MG IN THE MORNING AND 0.5 MG AT NIGHT)
     Route: 065
     Dates: start: 20190725

REACTIONS (6)
  - Cholelithiasis [Not Recovered/Not Resolved]
  - Inappropriate schedule of product administration [Unknown]
  - Off label use [Unknown]
  - Blood pressure decreased [Not Recovered/Not Resolved]
  - Hallucination [Not Recovered/Not Resolved]
  - Drug interaction [Not Recovered/Not Resolved]

NARRATIVE: CASE EVENT DATE: 20190725
